FAERS Safety Report 8912470 (Version 5)
Quarter: 2014Q2

REPORT INFORMATION
  Report Type: Spontaneous
  Country: US (occurrence: US)
  Receive Date: 20121116
  Receipt Date: 20140516
  Transmission Date: 20141212
  Serious: Yes (Disabling)
  Sender: FDA-Public Use
  Company Number: US-MERCK-1211USA002995

PATIENT
  Sex: Male

DRUGS (1)
  1. PROPECIA [Suspect]
     Indication: ALOPECIA
     Dosage: 1 MG, UNK
     Route: 048
     Dates: start: 20091211, end: 20110215

REACTIONS (9)
  - Anxiety [Not Recovered/Not Resolved]
  - Sexual dysfunction [Not Recovered/Not Resolved]
  - Penile size reduced [Unknown]
  - Genital hypoaesthesia [Unknown]
  - Disturbance in attention [Unknown]
  - Oral herpes [Unknown]
  - Erectile dysfunction [Recovering/Resolving]
  - Keratomileusis [Unknown]
  - Acne [Unknown]
